FAERS Safety Report 7459660-3 (Version None)
Quarter: 2011Q2

REPORT INFORMATION
  Report Type: 
  Country: None (occurrence: None)
  Receive Date: 20110505
  Receipt Date: 20110502
  Transmission Date: 20111010
  Serious: Yes (Hospitalization, Disabling, Other)
  Sender: FDA-Public Use
  Company Number: PHHY2011CA36701

PATIENT
  Sex: Female

DRUGS (4)
  1. ACLASTA/ZOLEDRONATE [Suspect]
     Dosage: 5 MG,
     Route: 042
     Dates: start: 20100310
  2. ACLASTA/ZOLEDRONATE [Suspect]
     Indication: OSTEOPOROSIS
     Dosage: 5 MG,
     Route: 042
     Dates: start: 20090311
  3. VITAMIN D [Concomitant]
  4. CALCIUM [Concomitant]

REACTIONS (4)
  - TIBIA FRACTURE [None]
  - FALL [None]
  - GAIT DISTURBANCE [None]
  - LOWER LIMB FRACTURE [None]
